FAERS Safety Report 20198495 (Version 1)
Quarter: 2021Q4

REPORT INFORMATION
  Report Type: Spontaneous
  Country: US (occurrence: None)
  Receive Date: 20211216
  Receipt Date: 20211216
  Transmission Date: 20220303
  Serious: Yes (Death)
  Sender: FDA-Public Use
  Company Number: None

PATIENT
  Age: 77 Year
  Sex: Male

DRUGS (13)
  1. TEMOZOLOMIDE [Suspect]
     Active Substance: TEMOZOLOMIDE
     Indication: Brain neoplasm malignant
     Route: 048
     Dates: start: 20211025, end: 20211130
  2. ATORVASTATIN [Concomitant]
  3. CALCIUM [Concomitant]
  4. DILTIAZEM CAP [Concomitant]
  5. ER [Concomitant]
  6. ELIQUIS TAB [Concomitant]
  7. FUROSEMIDE [Concomitant]
  8. METOPROLOL SUCCINATE [Concomitant]
     Active Substance: METOPROLOL SUCCINATE
  9. MULTIPLE VIT TAB [Concomitant]
  10. PANTOPRAZOLE TAB [Concomitant]
  11. PREDNISONE TAB [Concomitant]
  12. TEMOZOLOMIDE [Concomitant]
  13. TROSPIUM CL TAB [Concomitant]

REACTIONS (1)
  - Death [None]

NARRATIVE: CASE EVENT DATE: 20211130
